FAERS Safety Report 22159145 (Version 1)
Quarter: 2023Q1

REPORT INFORMATION
  Report Type: Spontaneous
  Country: KR (occurrence: KR)
  Receive Date: 20230331
  Receipt Date: 20230331
  Transmission Date: 20230418
  Serious: Yes (Hospitalization, Disabling)
  Sender: FDA-Public Use
  Company Number: KR-BoehringerIngelheim-2023-BI-227719

PATIENT
  Age: 44 Year
  Sex: Male

DRUGS (1)
  1. ALTEPLASE [Suspect]
     Active Substance: ALTEPLASE
     Indication: Product used for unknown indication
     Route: 042
     Dates: start: 20160331, end: 20160331

REACTIONS (4)
  - Pupillary reflex impaired [Recovered/Resolved]
  - Loss of consciousness [Recovered/Resolved]
  - Brain stem haemorrhage [Unknown]
  - Hemiplegia [Not Recovered/Not Resolved]

NARRATIVE: CASE EVENT DATE: 20160331
